FAERS Safety Report 7166244-3 (Version None)
Quarter: 2010Q4

REPORT INFORMATION
  Report Type: 
  Country: None (occurrence: None)
  Receive Date: 20101202
  Receipt Date: 20101117
  Transmission Date: 20110411
  Serious: Yes (Other)
  Sender: FDA-Public Use
  Company Number: 011972

PATIENT
  Age: 67 Year
  Sex: Male

DRUGS (7)
  1. PLETAL [Suspect]
     Indication: INTERMITTENT CLAUDICATION
     Dosage: 100 MG, ORAL
     Route: 048
     Dates: start: 20100727, end: 20100913
  2. CRESTOR [Concomitant]
  3. DISGREN (TRIFLUSAL) [Concomitant]
  4. DOXAZOSIN MESYLATE [Concomitant]
  5. ENANTYUM (DEXKETOPROFEN TROMETAMOL) [Concomitant]
  6. OMACOR [Concomitant]
  7. TORSEMIDE [Concomitant]

REACTIONS (3)
  - ABDOMINAL PAIN UPPER [None]
  - ARRHYTHMIA [None]
  - VISUAL IMPAIRMENT [None]
